FAERS Safety Report 5580279-3 (Version None)
Quarter: 2008Q1

REPORT INFORMATION
  Report Type: 
  Country: None (occurrence: None)
  Receive Date: 20080103
  Receipt Date: 20071227
  Transmission Date: 20080703
  Serious: Yes (Other)
  Sender: FDA-Public Use
  Company Number: B0500206A

PATIENT
  Age: 11 Year
  Sex: Female
  Weight: 28 kg

DRUGS (5)
  1. RELENZA [Suspect]
     Indication: INFLUENZA
     Dosage: 10MG TWICE PER DAY
     Route: 055
     Dates: start: 20071205, end: 20071209
  2. MUCOSOLVAN [Concomitant]
     Indication: BRONCHITIS
     Dosage: 60MG PER DAY
     Route: 048
     Dates: start: 20071205, end: 20071215
  3. MUCODYNE [Concomitant]
     Indication: BRONCHITIS
     Route: 048
     Dates: start: 20071205, end: 20071215
  4. CALONAL [Concomitant]
     Route: 065
  5. ACETAMINOPHEN [Concomitant]
     Route: 065

REACTIONS (1)
  - DELIRIUM [None]
